FAERS Safety Report 23494342 (Version 3)
Quarter: 2024Q1

REPORT INFORMATION
  Report Type: Spontaneous
  Country: US (occurrence: US)
  Receive Date: 20240207
  Receipt Date: 20240209
  Transmission Date: 20240410
  Serious: Yes (Death)
  Sender: FDA-Public Use
  Company Number: US-PFIZER INC-PV202400009580

PATIENT
  Age: 76 Year
  Sex: Female
  Weight: 51.8 kg

DRUGS (2)
  1. IBRANCE [Suspect]
     Active Substance: PALBOCICLIB
     Dosage: 125 MG, CYCLIC (TAKE ON DAYS 1-21 OF EVERY 28 CYCLE)
     Route: 048
  2. IBRANCE [Suspect]
     Active Substance: PALBOCICLIB
     Dosage: TAKE 7 TABLET DAILY FOR 21 DAYS, THEN REST FOR 7 DAYS

REACTIONS (2)
  - Death [Fatal]
  - Off label use [Unknown]
